FAERS Safety Report 16250321 (Version 2)
Quarter: 2019Q2

REPORT INFORMATION
  Report Type: Spontaneous
  Country: US (occurrence: US)
  Receive Date: 20190429
  Receipt Date: 20190514
  Transmission Date: 20190711
  Serious: No
  Sender: FDA-Public Use
  Company Number: US-PFIZER INC-2019174821

PATIENT
  Age: 63 Year
  Sex: Female
  Weight: 81.65 kg

DRUGS (1)
  1. GABAPENTIN. [Suspect]
     Active Substance: GABAPENTIN
     Indication: NEUROPATHY PERIPHERAL
     Dosage: 600 MG, 4X/DAY(1 TABLET TAKEN BY MOUTH IN THE MORNING, 1 AT NOON, 2 BEFORE BED)
     Route: 048
     Dates: start: 2013

REACTIONS (1)
  - Drug ineffective for unapproved indication [Not Recovered/Not Resolved]

NARRATIVE: CASE EVENT DATE: 2013
